FAERS Safety Report 24036228 (Version 1)
Quarter: 2024Q3

REPORT INFORMATION
  Report Type: Spontaneous
  Country: US (occurrence: US)
  Receive Date: 20240701
  Receipt Date: 20240701
  Transmission Date: 20241016
  Serious: Yes (Other)
  Sender: NOVO NORDISK
  Company Number: US-NOVOPROD-1246131

PATIENT
  Age: 73 Year
  Sex: Female

DRUGS (5)
  1. NOVOSEVEN [Suspect]
     Active Substance: COAGULATION FACTOR VIIA RECOMBINANT HUMAN
     Indication: Anti factor VIII antibody positive
     Dosage: UNK
  2. HUMAN IMMUNOGLOBULIN G [Suspect]
     Active Substance: HUMAN IMMUNOGLOBULIN G
     Indication: Anti factor VIII antibody positive
     Dosage: UNK
  3. RITUXIMAB [Suspect]
     Active Substance: RITUXIMAB
     Indication: Anti factor VIII antibody positive
     Dosage: UNK
  4. CYCLOPHOSPHAMIDE [Suspect]
     Active Substance: CYCLOPHOSPHAMIDE
     Indication: Anti factor VIII antibody positive
     Dosage: UNK
  5. PREDNISONE [Concomitant]
     Active Substance: PREDNISONE
     Indication: Anti factor VIII antibody positive
     Dosage: UNK

REACTIONS (5)
  - Shock [Unknown]
  - Cardio-respiratory arrest [Unknown]
  - Enterococcal infection [Unknown]
  - Pneumonia acinetobacter [Unknown]
  - Drug ineffective [Unknown]
